FAERS Safety Report 6541073-X (Version None)
Quarter: 2010Q1

REPORT INFORMATION
  Report Type: 
  Country: None (occurrence: None)
  Receive Date: 20100118
  Receipt Date: 20100106
  Transmission Date: 20100710
  Serious: Yes (Hospitalization)
  Sender: FDA-Public Use
  Company Number: FR-NAPPMUNDI-GBR-2010-0006006

PATIENT
  Sex: Male

DRUGS (1)
  1. MORPHINE SULFATE [Suspect]
     Indication: PAIN
     Dosage: 40 MG, BID
     Route: 048
     Dates: end: 20100101

REACTIONS (4)
  - CONSTIPATION [None]
  - HICCUPS [None]
  - MUSCLE CONTRACTIONS INVOLUNTARY [None]
  - VOMITING [None]
